FAERS Safety Report 8092490-0 (Version None)
Quarter: 2012Q1

REPORT INFORMATION
  Report Type: 
  Country: None (occurrence: None)
  Receive Date: 20120128
  Receipt Date: 20110728
  Transmission Date: 20120608
  Serious: No
  Sender: FDA-Public Use
  Company Number: US-ABBOTT-11P-163-0842398-00

PATIENT
  Sex: Male
  Weight: 81.266 kg

DRUGS (6)
  1. NORVASC [Concomitant]
     Indication: HYPERTENSION
  2. VSL #3 [Concomitant]
     Indication: PROBIOTIC THERAPY
  3. METHOTREXATE [Concomitant]
     Indication: CROHN'S DISEASE
     Dates: start: 20110101
  4. HUMIRA [Suspect]
     Indication: CROHN'S DISEASE
     Dates: start: 20090501, end: 20110601
  5. HUMIRA [Suspect]
     Dates: start: 20110622
  6. FOLIC ACID [Concomitant]
     Indication: VITAMIN SUPPLEMENTATION

REACTIONS (2)
  - INJECTION SITE ERYTHEMA [None]
  - CROHN'S DISEASE [None]
